FAERS Safety Report 9659688 (Version 2)
Quarter: 2013Q4

REPORT INFORMATION
  Report Type: Spontaneous
  Country: DE (occurrence: JP)
  Receive Date: 20131031
  Receipt Date: 20131127
  Transmission Date: 20140711
  Serious: Yes (Death, Hospitalization)
  Sender: FDA-Public Use
  Company Number: JP-BRACCO-007548

PATIENT
  Age: 75 Year
  Sex: Male
  Weight: 102 kg

DRUGS (1)
  1. IOPAMIRON [Suspect]
     Indication: COMPUTERISED TOMOGRAM
     Dosage: ADMINISTRATED AT 3 ML/SEC
     Route: 042
     Dates: start: 20131025, end: 20131025

REACTIONS (1)
  - Anaphylactic shock [Fatal]
